FAERS Safety Report 20596196 (Version 1)
Quarter: 2022Q1

REPORT INFORMATION
  Report Type: Spontaneous
  Country: US (occurrence: US)
  Receive Date: 20220315
  Receipt Date: 20220315
  Transmission Date: 20220424
  Serious: Yes (Other)
  Sender: FDA-Public Use
  Company Number: US-AMGEN-USASL2022043025

PATIENT
  Age: 83 Year
  Sex: Male
  Weight: 87 kg

DRUGS (27)
  1. XGEVA [Suspect]
     Active Substance: DENOSUMAB
     Indication: Bone loss
     Dosage: UNK
     Route: 065
     Dates: end: 202102
  2. XGEVA [Suspect]
     Active Substance: DENOSUMAB
     Indication: Off label use
  3. ENZALUTAMIDE [Suspect]
     Active Substance: ENZALUTAMIDE
     Indication: Prostate cancer
     Dosage: 160 MILLIGRAM, QD
     Route: 048
     Dates: start: 201910
  4. ENZALUTAMIDE [Suspect]
     Active Substance: ENZALUTAMIDE
     Dosage: 80 MILLIGRAM, QD
     Route: 048
  5. ENZALUTAMIDE [Suspect]
     Active Substance: ENZALUTAMIDE
     Dosage: 80 MILLIGRAM, QD
     Route: 048
  6. ENZALUTAMIDE [Suspect]
     Active Substance: ENZALUTAMIDE
     Dosage: 80 MILLIGRAM, QD
     Route: 048
  7. ENZALUTAMIDE [Suspect]
     Active Substance: ENZALUTAMIDE
     Dosage: 80 MILLIGRAM, QD
     Route: 048
  8. PRALUENT [Concomitant]
     Active Substance: ALIROCUMAB
     Dosage: UNK
  9. CALCIUM CARBONATE [Concomitant]
     Active Substance: CALCIUM CARBONATE
     Dosage: UNK
  10. FIBER [Concomitant]
     Active Substance: PSYLLIUM HUSK
     Dosage: 625 MILLIGRAM
  11. INDAPAMIDE [Concomitant]
     Active Substance: INDAPAMIDE
     Dosage: UNK
  12. METOPROLOL TARTRATE [Concomitant]
     Active Substance: METOPROLOL TARTRATE
     Dosage: UNK
  13. VITAMIN D3 [Concomitant]
     Active Substance: CHOLECALCIFEROL
     Dosage: 25 MICROGRAM
  14. GABAPENTIN [Concomitant]
     Active Substance: GABAPENTIN
     Dosage: 300 MILLIGRAM
  15. TOBRAMYCIN [Concomitant]
     Active Substance: TOBRAMYCIN
  16. SERTRALINE [Concomitant]
     Active Substance: SERTRALINE HYDROCHLORIDE
     Dosage: UNK
  17. PREDNISOLONE ACETATE [Concomitant]
     Active Substance: PREDNISOLONE ACETATE
     Dosage: UNK
  18. ZOLOFT [Concomitant]
     Active Substance: SERTRALINE HYDROCHLORIDE
     Dosage: 50 MILLIGRAM
  19. ALPRAZOLAM [Concomitant]
     Active Substance: ALPRAZOLAM
     Dosage: 0.5 MILLIGRAM
  20. OXYCODONE [Concomitant]
     Active Substance: OXYCODONE
     Dosage: UNK
  21. METAMUCIL [Concomitant]
     Active Substance: PLANTAGO SEED
     Dosage: UNK
  22. BETAMETHASONE\CLOTRIMAZOLE [Concomitant]
     Active Substance: BETAMETHASONE\CLOTRIMAZOLE
     Dosage: UNK
  23. DICLOFENAC [Concomitant]
     Active Substance: DICLOFENAC
     Dosage: 100 MILLIGRAM
  24. DICLOFENAC [Concomitant]
     Active Substance: DICLOFENAC
     Dosage: 75 MILLIGRAM
  25. LUPRON [Concomitant]
     Active Substance: LEUPROLIDE ACETATE
     Dosage: UNK
     Dates: start: 2015
  26. METHYLPREDNISOLONE [Concomitant]
     Active Substance: METHYLPREDNISOLONE
     Dosage: UNK
  27. PENICILLIN V [Concomitant]
     Active Substance: PENICILLIN V
     Dosage: UNK

REACTIONS (11)
  - Cataract [Recovering/Resolving]
  - Osteonecrosis [Unknown]
  - Osteomyelitis [Unknown]
  - Hot flush [Not Recovered/Not Resolved]
  - Urinary incontinence [Unknown]
  - Product use in unapproved indication [Unknown]
  - Rash [Recovered/Resolved]
  - Back pain [Unknown]
  - Arthralgia [Unknown]
  - Fatigue [Recovering/Resolving]
  - Blood calcium decreased [Unknown]

NARRATIVE: CASE EVENT DATE: 20191001
